FAERS Safety Report 8058350-6 (Version None)
Quarter: 2012Q1

REPORT INFORMATION
  Report Type: 
  Country: None (occurrence: None)
  Receive Date: 20120120
  Receipt Date: 20120109
  Transmission Date: 20120608
  Serious: Yes (Hospitalization)
  Sender: FDA-Public Use
  Company Number: BE-ELI_LILLY_AND_COMPANY-BE201201002353

PATIENT
  Sex: Male

DRUGS (1)
  1. OLANZAPINE [Suspect]
     Dosage: 405 MG, UNK

REACTIONS (6)
  - AGITATION [None]
  - FALL [None]
  - AMNESIA [None]
  - OFF LABEL USE [None]
  - SOMNOLENCE [None]
  - CONFUSIONAL STATE [None]
